FAERS Safety Report 12395109 (Version 25)
Quarter: 2018Q1

REPORT INFORMATION
  Report Type: Spontaneous
  Country: US (occurrence: US)
  Receive Date: 20160523
  Receipt Date: 20180226
  Transmission Date: 20180508
  Serious: Yes (Hospitalization, Other)
  Sender: FDA-Public Use
  Company Number: US-ACTELION-A-NJ2016-136125

PATIENT
  Age: 48 Year
  Sex: Female
  Weight: 63.49 kg

DRUGS (44)
  1. BIOTIN [Concomitant]
     Active Substance: BIOTIN
  2. DIGOXIN. [Concomitant]
     Active Substance: DIGOXIN
  3. OMEPRAZOLE. [Concomitant]
     Active Substance: OMEPRAZOLE
  4. ATIVAN [Concomitant]
     Active Substance: LORAZEPAM
  5. FERROUS GLUCONATE [Concomitant]
     Active Substance: FERROUS GLUCONATE
  6. FLUTICASONE. [Concomitant]
     Active Substance: FLUTICASONE
  7. MORPHINE HYDROCHLORIDE [Concomitant]
     Active Substance: MORPHINE HYDROCHLORIDE
  8. VITAMIN B12 [Concomitant]
     Active Substance: CYANOCOBALAMIN
  9. METHAMPHETAMINE [Concomitant]
     Active Substance: METHAMPHETAMINE
  10. UPTRAVI [Suspect]
     Active Substance: SELEXIPAG
     Indication: PULMONARY HYPERTENSION
     Dosage: 1600 MCG, BID
     Route: 048
  11. ADCIRCA [Concomitant]
     Active Substance: TADALAFIL
  12. ASA [Concomitant]
     Active Substance: ASPIRIN
  13. REQUIP [Concomitant]
     Active Substance: ROPINIROLE HYDROCHLORIDE
  14. TORSEMIDE. [Concomitant]
     Active Substance: TORSEMIDE
  15. TRAMADOL. [Concomitant]
     Active Substance: TRAMADOL
  16. ALPRAZOLAM. [Concomitant]
     Active Substance: ALPRAZOLAM
  17. SINEMET [Concomitant]
     Active Substance: CARBIDOPA\LEVODOPA
  18. ORENITRAM [Suspect]
     Active Substance: TREPROSTINIL
     Indication: PULMONARY HYPERTENSION
     Dosage: 10 MG, TID
     Route: 048
     Dates: start: 20151229, end: 20160309
  19. ASCORBIC ACID. [Concomitant]
     Active Substance: ASCORBIC ACID
  20. UPTRAVI [Suspect]
     Active Substance: SELEXIPAG
     Dosage: 1000 MCG, BID
     Route: 048
     Dates: start: 20160307
  21. REVATIO [Concomitant]
     Active Substance: SILDENAFIL CITRATE
  22. CELEBREX [Concomitant]
     Active Substance: CELECOXIB
  23. MELOXICAM. [Concomitant]
     Active Substance: MELOXICAM
  24. METOLAZONE. [Concomitant]
     Active Substance: METOLAZONE
  25. DOCUSATE SODIUM. [Concomitant]
     Active Substance: DOCUSATE SODIUM
  26. IRON [Concomitant]
     Active Substance: IRON
  27. INVANZ [Concomitant]
     Active Substance: ERTAPENEM SODIUM
  28. LETAIRIS [Suspect]
     Active Substance: AMBRISENTAN
     Indication: PULMONARY ARTERIAL HYPERTENSION
     Dosage: 10 MG, QD
     Route: 048
     Dates: start: 20110208
  29. XARELTO [Concomitant]
     Active Substance: RIVAROXABAN
  30. AMITRIPTYLINE [Concomitant]
     Active Substance: AMITRIPTYLINE
  31. ONDANSETRON HCL [Concomitant]
     Active Substance: ONDANSETRON HYDROCHLORIDE
  32. VITAMIN B COMPLEX [Concomitant]
     Active Substance: CYANOCOBALAMIN\DEXPANTHENOL\NIACINAMIDE\PYRIDOXINE HYDROCHLORIDE\RIBOFLAVIN 5^-PHOSPHATE SODIUM\THIAMINE HYDROCHLORIDE\VITAMIN B COMPLEX
  33. RANITIDINE. [Concomitant]
     Active Substance: RANITIDINE
  34. DIPHENHYDRAMINE. [Concomitant]
     Active Substance: DIPHENHYDRAMINE
  35. KLOR-CON M20 [Concomitant]
     Active Substance: POTASSIUM CHLORIDE
  36. OXYGEN. [Concomitant]
     Active Substance: OXYGEN
     Dosage: 2-3L, PER MIN
  37. SIMVASTATIN. [Concomitant]
     Active Substance: SIMVASTATIN
  38. SPIRONOLACTONE. [Concomitant]
     Active Substance: SPIRONOLACTONE
  39. CALCIUM ACETAT [Concomitant]
     Active Substance: CALCIUM ACETATE
  40. PROMETHAZINE [Concomitant]
     Active Substance: PROMETHAZINE\PROMETHAZINE HYDROCHLORIDE
  41. ACIPHEX [Concomitant]
     Active Substance: RABEPRAZOLE SODIUM
  42. UPTRAVI [Suspect]
     Active Substance: SELEXIPAG
     Dosage: UNK
     Route: 048
  43. REMODULIN [Concomitant]
     Active Substance: TREPROSTINIL
  44. LEVOTHYROXINE. [Concomitant]
     Active Substance: LEVOTHYROXINE

REACTIONS (40)
  - Pulmonary pain [Unknown]
  - Syncope [Unknown]
  - Incontinence [Unknown]
  - Pain [Unknown]
  - Dyspnoea exertional [Unknown]
  - Abdominal discomfort [Unknown]
  - Feeling abnormal [Unknown]
  - Ascites [Unknown]
  - Spinal osteoarthritis [Unknown]
  - Localised oedema [Unknown]
  - Rash [Unknown]
  - Hypotension [Unknown]
  - Vomiting [Unknown]
  - Presyncope [Unknown]
  - Muscle spasms [Unknown]
  - Cerumen removal [Unknown]
  - Spinal pain [Unknown]
  - Dyspnoea [Unknown]
  - Renal failure [Unknown]
  - Loss of consciousness [Unknown]
  - Troponin increased [Unknown]
  - Fall [Unknown]
  - Pleural effusion [Unknown]
  - Ear haemorrhage [Unknown]
  - Anxiety [Unknown]
  - Nasopharyngitis [Unknown]
  - Palpitations [Unknown]
  - Chest pain [Unknown]
  - Spinal disorder [Unknown]
  - Bladder operation [Recovered/Resolved]
  - Dizziness [Unknown]
  - Pulmonary arterial hypertension [Unknown]
  - Weight increased [Unknown]
  - Cardiac failure [Unknown]
  - Seizure [Unknown]
  - Otorrhoea [Unknown]
  - Joint dislocation [Unknown]
  - Oedema peripheral [Unknown]
  - Musculoskeletal pain [Unknown]
  - Condition aggravated [Unknown]

NARRATIVE: CASE EVENT DATE: 20160421
